FAERS Safety Report 5890348-6 (Version None)
Quarter: 2008Q3

REPORT INFORMATION
  Report Type: 
  Country: None (occurrence: None)
  Receive Date: 20080918
  Receipt Date: 20080910
  Transmission Date: 20090109
  Serious: Yes (Hospitalization, Other)
  Sender: FDA-Public Use
  Company Number: 2008S1014873

PATIENT
  Age: 17 Year
  Sex: Male
  Weight: 45.8133 kg

DRUGS (2)
  1. AMITRIPTYLINE HYDROCHLORIDE [Suspect]
     Indication: HEADACHE
     Dosage: 25 MG;AT BEDTIME;ORAL, 50 MG;AT BEDTIME;ORAL
     Route: 048
     Dates: start: 20080719, end: 20080806
  2. AMITRIPTYLINE HYDROCHLORIDE [Suspect]
     Indication: HEADACHE
     Dosage: 25 MG;AT BEDTIME;ORAL, 50 MG;AT BEDTIME;ORAL
     Route: 048
     Dates: start: 20080807, end: 20080811

REACTIONS (10)
  - ABASIA [None]
  - CONVULSION [None]
  - DYSSTASIA [None]
  - HEART RATE INCREASED [None]
  - MOVEMENT DISORDER [None]
  - MUSCLE RIGIDITY [None]
  - MUSCLE TIGHTNESS [None]
  - MUSCULAR WEAKNESS [None]
  - RESPIRATORY ARREST [None]
  - TREMOR [None]
